FAERS Safety Report 5210469-0 (Version None)
Quarter: 2007Q1

REPORT INFORMATION
  Report Type: 
  Country: None (occurrence: None)
  Receive Date: 20070117
  Receipt Date: 20070109
  Transmission Date: 20070707
  Serious: Yes (Other)
  Sender: FDA-Public Use
  Company Number: PHEH2006US12888

PATIENT
  Age: 72 Year
  Sex: Male

DRUGS (4)
  1. ZOMETA [Suspect]
     Indication: MULTIPLE MYELOMA
     Dosage: 4 MG MONTHLY
     Dates: start: 20040101
  2. THALIDOMIDE [Concomitant]
     Indication: MULTIPLE MYELOMA
     Dosage: 200 MG, QD
  3. VELCADE [Concomitant]
  4. DECADRON [Concomitant]
     Dosage: 40 MG, UNK

REACTIONS (4)
  - DENTAL OPERATION [None]
  - LOOSE TOOTH [None]
  - NECROSIS [None]
  - OSTEONECROSIS [None]
